FAERS Safety Report 22650539 (Version 1)
Quarter: 2023Q2

REPORT INFORMATION
  Report Type: Spontaneous
  Country: US (occurrence: None)
  Receive Date: 20230627
  Receipt Date: 20230627
  Transmission Date: 20230721
  Serious: Yes (Other)
  Sender: FDA-Public Use
  Company Number: None

PATIENT
  Age: 55 Year
  Sex: Male
  Weight: 103.5 kg

DRUGS (3)
  1. KEYTRUDA [Suspect]
     Active Substance: PEMBROLIZUMAB
     Indication: Cancer surgery
  2. Telismartin [Concomitant]
  3. INDAPAMIDE [Concomitant]
     Active Substance: INDAPAMIDE

REACTIONS (7)
  - Decreased appetite [None]
  - Insomnia [None]
  - Irritability [None]
  - Penile erythema [None]
  - Arthritis [None]
  - Diarrhoea [None]
  - Cough [None]

NARRATIVE: CASE EVENT DATE: 20230427
